FAERS Safety Report 8375712-8 (Version None)
Quarter: 2012Q2

REPORT INFORMATION
  Report Type: 
  Country: None (occurrence: None)
  Receive Date: 20120522
  Receipt Date: 20120516
  Transmission Date: 20120825
  Serious: Yes (Other)
  Sender: FDA-Public Use
  Company Number: US-PFIZER INC-2012119758

PATIENT
  Sex: Female
  Weight: 81.633 kg

DRUGS (2)
  1. LEVOXYL [Suspect]
     Indication: HYPOTHYROIDISM
     Dosage: 100 UG, UNK
  2. LEVOXYL [Suspect]
     Dosage: 0.088 MG, UNK

REACTIONS (4)
  - AGITATION [None]
  - ANXIETY [None]
  - PALPITATIONS [None]
  - OROPHARYNGEAL DISCOMFORT [None]
